FAERS Safety Report 13283748 (Version 2)
Quarter: 2017Q1

REPORT INFORMATION
  Report Type: Spontaneous
  Country: US (occurrence: US)
  Receive Date: 20170301
  Receipt Date: 20170328
  Transmission Date: 20170428
  Serious: Yes (Life-Threatening, Hospitalization, Other)
  Sender: FDA-Public Use
  Company Number: US-THE MEDICINES COMPANY-US-MDCO-17-00077

PATIENT
  Age: 60 Year
  Sex: Female
  Weight: 88.45 kg

DRUGS (68)
  1. DILAUDID [Concomitant]
     Active Substance: HYDROMORPHONE HYDROCHLORIDE
     Route: 048
     Dates: start: 20170223, end: 20170228
  2. ATIVAN [Concomitant]
     Active Substance: LORAZEPAM
     Dosage: NOT REPORTED
     Route: 040
     Dates: start: 20170218, end: 20170223
  3. ZOFRAN [Concomitant]
     Active Substance: ONDANSETRON HYDROCHLORIDE
     Route: 060
     Dates: start: 20170223
  4. LASIX [Concomitant]
     Active Substance: FUROSEMIDE
     Indication: PRODUCT USED FOR UNKNOWN INDICATION
     Route: 040
     Dates: start: 20170213, end: 20170213
  5. LASIX [Concomitant]
     Active Substance: FUROSEMIDE
     Route: 040
     Dates: start: 20170221, end: 20170221
  6. SODIUM CHLORIDE. [Concomitant]
     Active Substance: SODIUM CHLORIDE
     Route: 040
     Dates: start: 20170213, end: 20170223
  7. SODIUM CHLORIDE. [Concomitant]
     Active Substance: SODIUM CHLORIDE
     Route: 040
     Dates: start: 20170223, end: 20170227
  8. NORMAL SALINE [Concomitant]
     Active Substance: SODIUM CHLORIDE
     Route: 042
     Dates: start: 20170213, end: 20170213
  9. NORMAL SALINE [Concomitant]
     Active Substance: SODIUM CHLORIDE
     Route: 041
     Dates: start: 20170221, end: 20170223
  10. DILAUDID [Concomitant]
     Active Substance: HYDROMORPHONE HYDROCHLORIDE
     Dosage: NOT REPORTED
     Route: 030
     Dates: start: 20170217, end: 20170223
  11. ATIVAN [Concomitant]
     Active Substance: LORAZEPAM
     Dosage: NOT REPORTED
     Route: 048
     Dates: start: 20170223
  12. CENTRUM [Concomitant]
     Active Substance: VITAMINS
     Indication: PRODUCT USED FOR UNKNOWN INDICATION
     Route: 048
     Dates: start: 20170212, end: 20170223
  13. CIPRO [Concomitant]
     Active Substance: CIPROFLOXACIN HYDROCHLORIDE
     Route: 048
     Dates: start: 20170211, end: 20170223
  14. SODIUM CHLORIDE. [Concomitant]
     Active Substance: SODIUM CHLORIDE
     Route: 040
     Dates: start: 20170223, end: 20170226
  15. ELTA [Concomitant]
     Route: 061
     Dates: start: 20170223, end: 20170228
  16. NORMAL SALINE [Concomitant]
     Active Substance: SODIUM CHLORIDE
     Route: 041
     Dates: start: 20170211, end: 20170212
  17. WOUND AND SKIN CLEANSER [Concomitant]
     Indication: WOUND TREATMENT
     Route: 061
     Dates: start: 20170211, end: 20170223
  18. WOUND AND SKIN CLEANSER [Concomitant]
     Route: 061
     Dates: start: 20170223, end: 20170228
  19. DILAUDID [Concomitant]
     Active Substance: HYDROMORPHONE HYDROCHLORIDE
     Dosage: NOT REPORTED
     Route: 042
     Dates: start: 20170211, end: 20170212
  20. TYLENOL [Concomitant]
     Active Substance: ACETAMINOPHEN
     Dosage: NOT REPORTED
     Route: 054
     Dates: start: 20170224, end: 20170228
  21. BENADRYL [Concomitant]
     Active Substance: DIPHENHYDRAMINE HYDROCHLORIDE
     Indication: PRODUCT USED FOR UNKNOWN INDICATION
     Route: 048
     Dates: start: 20170213, end: 20170213
  22. SODIUM CHLORIDE. [Concomitant]
     Active Substance: SODIUM CHLORIDE
     Route: 040
     Dates: start: 20170213, end: 20170214
  23. KCL [Concomitant]
     Active Substance: POTASSIUM CHLORIDE
     Indication: PRODUCT USED FOR UNKNOWN INDICATION
     Route: 048
     Dates: start: 20170214, end: 20170216
  24. KCL [Concomitant]
     Active Substance: POTASSIUM CHLORIDE
     Route: 048
     Dates: start: 20170216, end: 20170223
  25. NORMAL SALINE [Concomitant]
     Active Substance: SODIUM CHLORIDE
     Route: 041
     Dates: start: 20170223, end: 20170224
  26. MORPHINE [Concomitant]
     Active Substance: MORPHINE
     Indication: PAIN
     Route: 040
     Dates: start: 20170211, end: 20170211
  27. HCTZ [Concomitant]
     Active Substance: HYDROCHLOROTHIAZIDE
     Indication: PRODUCT USED FOR UNKNOWN INDICATION
     Route: 048
     Dates: start: 20170212, end: 20170221
  28. DILAUDID [Concomitant]
     Active Substance: HYDROMORPHONE HYDROCHLORIDE
     Indication: PAIN
     Dosage: NOT REPORTED
     Route: 048
     Dates: start: 20170211, end: 20170223
  29. DILAUDID [Concomitant]
     Active Substance: HYDROMORPHONE HYDROCHLORIDE
     Dosage: NOT REPORTED
     Route: 030
     Dates: start: 20170217, end: 20170217
  30. DILAUDID [Concomitant]
     Active Substance: HYDROMORPHONE HYDROCHLORIDE
     Route: 040
     Dates: start: 20170223, end: 20170223
  31. DILAUDID [Concomitant]
     Active Substance: HYDROMORPHONE HYDROCHLORIDE
     Dosage: NOT REPORTED
     Route: 040
     Dates: start: 20170224, end: 20170301
  32. ATIVAN [Concomitant]
     Active Substance: LORAZEPAM
     Dosage: NOT REPORTED
     Route: 040
     Dates: start: 20170223, end: 20170225
  33. NORMAL SALINE [Concomitant]
     Active Substance: SODIUM CHLORIDE
     Route: 041
     Dates: start: 20170212, end: 20170213
  34. NORMAL SALINE [Concomitant]
     Active Substance: SODIUM CHLORIDE
     Route: 041
     Dates: start: 20170224, end: 20170226
  35. PACKED RED BLOOD CELLS [Concomitant]
     Active Substance: HUMAN RED BLOOD CELL
     Indication: PRODUCT USED FOR UNKNOWN INDICATION
     Dates: start: 20170213, end: 20170214
  36. PROCHLORPERAZINE. [Concomitant]
     Active Substance: PROCHLORPERAZINE
     Indication: HALLUCINATION
     Route: 042
     Dates: start: 20170223, end: 20170228
  37. MORPHINE [Concomitant]
     Active Substance: MORPHINE
     Route: 041
     Dates: start: 20170227, end: 20170228
  38. CIPRO [Concomitant]
     Active Substance: CIPROFLOXACIN HYDROCHLORIDE
     Indication: PRODUCT USED FOR UNKNOWN INDICATION
     Route: 048
     Dates: start: 20170211, end: 20170211
  39. LASIX [Concomitant]
     Active Substance: FUROSEMIDE
     Route: 040
     Dates: start: 20170224, end: 20170228
  40. SODIUM CHLORIDE. [Concomitant]
     Active Substance: SODIUM CHLORIDE
     Indication: FLUSHING
     Route: 040
     Dates: start: 20170213, end: 20170223
  41. ROCEPHIN [Concomitant]
     Active Substance: CEFTRIAXONE SODIUM
     Indication: PRODUCT USED FOR UNKNOWN INDICATION
     Route: 040
     Dates: start: 20170214, end: 20170222
  42. DAKINS FULL [Concomitant]
     Active Substance: SODIUM HYPOCHLORITE
     Indication: PRODUCT USED FOR UNKNOWN INDICATION
     Route: 061
     Dates: start: 20170222, end: 20170223
  43. ORBACTIV [Suspect]
     Active Substance: ORITAVANCIN
     Indication: SKIN INFECTION
     Route: 041
     Dates: start: 20170222, end: 20170222
  44. PROCHLORPERAZINE. [Concomitant]
     Active Substance: PROCHLORPERAZINE
     Indication: NAUSEA
     Route: 042
     Dates: start: 20170211, end: 20170223
  45. ZEBETA [Concomitant]
     Active Substance: BISOPROLOL FUMARATE
     Indication: PRODUCT USED FOR UNKNOWN INDICATION
     Route: 048
     Dates: start: 20170212, end: 20170221
  46. ATIVAN [Concomitant]
     Active Substance: LORAZEPAM
     Indication: ANXIETY
     Dosage: NOT REPORTED
     Route: 048
     Dates: start: 20170211, end: 20170218
  47. ZOFRAN [Concomitant]
     Active Substance: ONDANSETRON HYDROCHLORIDE
     Indication: NAUSEA
     Dosage: NOT REPORTED
     Route: 060
     Dates: start: 20170211, end: 20170223
  48. TYLENOL [Concomitant]
     Active Substance: ACETAMINOPHEN
     Route: 048
     Dates: start: 20170223
  49. HEPARIN LOCK FLUSH [Concomitant]
     Active Substance: HEPARIN SODIUM
     Route: 040
     Dates: start: 20170213
  50. NORMAL SALINE [Concomitant]
     Active Substance: SODIUM CHLORIDE
     Indication: PRODUCT USED FOR UNKNOWN INDICATION
     Route: 040
     Dates: start: 20170211, end: 20170211
  51. MIACALCIN [Suspect]
     Active Substance: CALCITONIN SALMON
     Indication: HYPERCALCAEMIA
     Route: 058
     Dates: start: 20170222, end: 20170222
  52. DILAUDID [Concomitant]
     Active Substance: HYDROMORPHONE HYDROCHLORIDE
     Dosage: NOT REPORTED
     Route: 042
     Dates: start: 20170212, end: 20170217
  53. ATIVAN [Concomitant]
     Active Substance: LORAZEPAM
     Dosage: NOT REPORTED
     Route: 048
     Dates: start: 20170218, end: 20170223
  54. LASIX [Concomitant]
     Active Substance: FUROSEMIDE
     Route: 040
     Dates: start: 20170222, end: 20170223
  55. LASIX [Concomitant]
     Active Substance: FUROSEMIDE
     Route: 040
     Dates: start: 20170222, end: 20170222
  56. SODIUM CHLORIDE. [Concomitant]
     Active Substance: SODIUM CHLORIDE
     Route: 040
     Dates: start: 20170213, end: 20170214
  57. HEPARIN LOCK FLUSH [Concomitant]
     Active Substance: HEPARIN SODIUM
     Indication: PRODUCT USED FOR UNKNOWN INDICATION
     Route: 040
     Dates: start: 20170213, end: 20170223
  58. ELTA [Concomitant]
     Indication: PRODUCT USED FOR UNKNOWN INDICATION
     Route: 061
     Dates: start: 20170215, end: 20170223
  59. BONIVA [Concomitant]
     Active Substance: IBANDRONATE SODIUM
     Indication: PRODUCT USED FOR UNKNOWN INDICATION
     Route: 048
     Dates: start: 20170221, end: 20170221
  60. NORMAL SALINE [Concomitant]
     Active Substance: SODIUM CHLORIDE
     Route: 040
     Dates: start: 20170222, end: 20170222
  61. NORMAL SALINE [Concomitant]
     Active Substance: SODIUM CHLORIDE
     Route: 041
     Dates: start: 20170226, end: 20170226
  62. NORMAL SALINE [Concomitant]
     Active Substance: SODIUM CHLORIDE
     Route: 041
     Dates: start: 20170226, end: 20170228
  63. DAKINS FULL [Concomitant]
     Active Substance: SODIUM HYPOCHLORITE
     Route: 061
     Dates: start: 20170223, end: 20170228
  64. DILAUDID [Concomitant]
     Active Substance: HYDROMORPHONE HYDROCHLORIDE
     Dosage: NOT REPORTED
     Route: 040
     Dates: start: 20170223, end: 20170224
  65. TYLENOL [Concomitant]
     Active Substance: ACETAMINOPHEN
     Indication: PYREXIA
     Route: 048
     Dates: start: 20170212, end: 20170223
  66. TYLENOL [Concomitant]
     Active Substance: ACETAMINOPHEN
     Indication: PAIN
     Route: 048
     Dates: start: 20170213, end: 20170213
  67. BENADRYL [Concomitant]
     Active Substance: DIPHENHYDRAMINE HYDROCHLORIDE
     Route: 040
     Dates: start: 20170222, end: 20170222
  68. NORMAL SALINE [Concomitant]
     Active Substance: SODIUM CHLORIDE
     Route: 041
     Dates: start: 20170216, end: 20170221

REACTIONS (3)
  - Blood pressure decreased [Recovered/Resolved]
  - Rash generalised [Recovered/Resolved]
  - Unresponsive to stimuli [Recovered/Resolved]

NARRATIVE: CASE EVENT DATE: 20170222
